FAERS Safety Report 9319356 (Version 1)
Quarter: 2013Q2

REPORT INFORMATION
  Report Type: Spontaneous
  Country: US (occurrence: None)
  Receive Date: 20130524
  Receipt Date: 20130524
  Transmission Date: 20140414
  Serious: Yes (Disabling, Other)
  Sender: FDA-Public Use
  Company Number: 2013AP005268

PATIENT
  Age: 64 Year
  Sex: Female
  Weight: 63.05 kg

DRUGS (8)
  1. ATORVASTATIN [Suspect]
     Indication: BLOOD CHOLESTEROL INCREASED
     Route: 048
     Dates: start: 201303, end: 20130423
  2. GAVISCON [Concomitant]
  3. OMEPRAZOLE [Concomitant]
  4. AMBIEN [Concomitant]
  5. LYRICA [Concomitant]
  6. HYDROXYCHOROQUINE [Concomitant]
  7. VESICARE [Concomitant]
  8. LIPITOR [Concomitant]

REACTIONS (8)
  - Pancreatitis [None]
  - Diarrhoea [None]
  - Back pain [None]
  - Musculoskeletal pain [None]
  - Abdominal pain upper [None]
  - Spinal cord disorder [None]
  - Pancreatic disorder [None]
  - Pain [None]
